FAERS Safety Report 17507370 (Version 1)
Quarter: 2020Q1

REPORT INFORMATION
  Report Type: Spontaneous
  Country: US (occurrence: US)
  Receive Date: 20200306
  Receipt Date: 20200306
  Transmission Date: 20200409
  Serious: No
  Sender: FDA-Public Use
  Company Number: US-UCBSA-2019007187

PATIENT
  Age: 41 Year
  Sex: Male

DRUGS (1)
  1. BRIVIACT [Suspect]
     Active Substance: BRIVARACETAM
     Indication: EPILEPSY
     Dosage: UNK

REACTIONS (7)
  - Seizure [Unknown]
  - Confusional state [Unknown]
  - Memory impairment [Unknown]
  - Depression [Unknown]
  - Aura [Unknown]
  - Disorientation [Unknown]
  - Anxiety [Unknown]
